FAERS Safety Report 19997385 (Version 1)
Quarter: 2021Q4

REPORT INFORMATION
  Report Type: Other
  Country: CA (occurrence: CA)
  Receive Date: 20211025
  Receipt Date: 20211025
  Transmission Date: 20220304
  Serious: Yes (Other)
  Sender: FDA-Public Use
  Company Number: CA-CELLTRION INC.-2021CA014228

PATIENT

DRUGS (5)
  1. TRASTUZUMAB [Suspect]
     Active Substance: TRASTUZUMAB
     Indication: Breast cancer
     Route: 065
  2. CAPECITABINE [Suspect]
     Active Substance: CAPECITABINE
     Indication: Product used for unknown indication
     Route: 065
  3. PERJETA [Suspect]
     Active Substance: PERTUZUMAB
     Indication: Breast cancer
     Route: 065
  4. CALCIUM [Concomitant]
     Active Substance: CALCIUM
  5. DEXILANT [Concomitant]
     Active Substance: DEXLANSOPRAZOLE

REACTIONS (4)
  - Metastases to lung [Unknown]
  - Taste disorder [Unknown]
  - Fatigue [Unknown]
  - Nasopharyngitis [Unknown]
